FAERS Safety Report 9869673 (Version 2)
Quarter: 2014Q1

REPORT INFORMATION
  Report Type: Report from Study
  Country: CA (occurrence: CA)
  Receive Date: 20140205
  Receipt Date: 20140205
  Transmission Date: 20141002
  Serious: Yes (Other)
  Sender: FDA-Public Use
  Company Number: CA-JNJFOC-20140107343

PATIENT
  Age: 42 Year
  Sex: Female
  Weight: 78 kg

DRUGS (9)
  1. REMICADE [Suspect]
     Indication: CROHN^S DISEASE
     Route: 042
  2. PREDNISONE [Suspect]
     Indication: CROHN^S DISEASE
     Route: 065
  3. PREDNISONE [Suspect]
     Indication: CROHN^S DISEASE
     Route: 065
     Dates: start: 20140102
  4. IMURAN [Concomitant]
     Route: 065
  5. QUESTRAN [Concomitant]
     Route: 065
  6. PANTOLOC [Concomitant]
     Route: 065
  7. HYDROCHLOROTHIAZIDE [Concomitant]
     Route: 065
  8. VITAMIN D [Concomitant]
     Route: 065
  9. PREMARIN [Concomitant]
     Route: 065

REACTIONS (2)
  - Lung infection [Not Recovered/Not Resolved]
  - Ileal stenosis [Not Recovered/Not Resolved]
